FAERS Safety Report 7957931-5 (Version None)
Quarter: 2011Q4

REPORT INFORMATION
  Report Type: 
  Country: None (occurrence: None)
  Receive Date: 20111205
  Receipt Date: 20111201
  Transmission Date: 20120403
  Serious: Yes (Hospitalization, Other)
  Sender: FDA-Public Use
  Company Number: DE-ABBOTT-10P-062-0636680-00

PATIENT
  Age: 72 Year
  Sex: Female

DRUGS (2)
  1. ZEMPLAR [Suspect]
     Indication: HYPERPARATHYROIDISM SECONDARY
  2. PREGABALIN [Concomitant]
     Indication: PRODUCT USED FOR UNKNOWN INDICATION

REACTIONS (5)
  - CATHETER PLACEMENT [None]
  - MEDICAL DEVICE REMOVAL [None]
  - ATRIAL FIBRILLATION [None]
  - PARATHYROID TUMOUR BENIGN [None]
  - LEG AMPUTATION [None]
